FAERS Safety Report 4911049-4 (Version None)
Quarter: 2006Q1

REPORT INFORMATION
  Report Type: 
  Country: None (occurrence: None)
  Receive Date: 20060214
  Receipt Date: 20051004
  Transmission Date: 20060701
  Serious: Yes (Disabling, Other)
  Sender: FDA-Public Use
  Company Number: US-MERCK-0510USA03795

PATIENT
  Age: 61 Year
  Sex: Female
  Weight: 57 kg

DRUGS (3)
  1. VIOXX [Suspect]
     Indication: ARTHRITIS
     Route: 048
     Dates: start: 19990818, end: 20040930
  2. TYLENOL (CAPLET) [Concomitant]
     Route: 065
  3. ASPIRIN [Concomitant]
     Route: 065

REACTIONS (11)
  - ARTHRALGIA [None]
  - BACK PAIN [None]
  - CEREBROVASCULAR ACCIDENT [None]
  - CEREBROVASCULAR DISORDER [None]
  - CHEST PAIN [None]
  - COUGH [None]
  - DEPRESSION [None]
  - GROIN PAIN [None]
  - HEADACHE [None]
  - PAIN IN EXTREMITY [None]
  - PELVIC PAIN [None]
